FAERS Safety Report 6759805-4 (Version None)
Quarter: 2010Q2

REPORT INFORMATION
  Report Type: 
  Country: None (occurrence: None)
  Receive Date: 20100608
  Receipt Date: 20100603
  Transmission Date: 20101027
  Serious: Yes (Other)
  Sender: FDA-Public Use
  Company Number: US-JNJFOC-20100601806

PATIENT
  Sex: Male
  Weight: 49.9 kg

DRUGS (6)
  1. SANDOZ FENTANYL TRANSDERMAL SYSTEM [Suspect]
     Indication: PAIN
     Route: 062
  2. SANDOZ FENTANYL TRANSDERMAL SYSTEM [Suspect]
     Route: 062
  3. FENTANYL-100 [Suspect]
     Indication: PAIN
     Route: 062
  4. NORVASC [Concomitant]
     Indication: HYPERTENSION
     Route: 048
  5. LITHIUM CARBONATE CAP [Concomitant]
     Indication: BIPOLAR DISORDER
     Route: 048
  6. VICODIN [Concomitant]
     Indication: BREAKTHROUGH PAIN
     Dosage: 7.5 MG TO 750 MG AS NEEDED
     Route: 048

REACTIONS (5)
  - ARTHRALGIA [None]
  - ARTHRITIS [None]
  - HYPOTHYROIDISM [None]
  - NEUROPATHY PERIPHERAL [None]
  - VITAMIN D DECREASED [None]
